FAERS Safety Report 7741147-1 (Version None)
Quarter: 2011Q3

REPORT INFORMATION
  Report Type: 
  Country: None (occurrence: None)
  Receive Date: 20110909
  Receipt Date: 20110902
  Transmission Date: 20111222
  Serious: Yes (Hospitalization, Other)
  Sender: FDA-Public Use
  Company Number: BR-ACTELION-A-CH2011-53125

PATIENT
  Sex: Male

DRUGS (2)
  1. PHOSPHODIESTERASE INHIBITORS [Concomitant]
  2. TRACLEER [Suspect]
     Indication: PULMONARY ARTERIAL HYPERTENSION
     Dosage: 125 MG, BID
     Route: 048
     Dates: start: 20110101

REACTIONS (6)
  - RIGHT VENTRICULAR FAILURE [None]
  - HAEMODIALYSIS [None]
  - DIALYSIS [None]
  - CARDIORENAL SYNDROME [None]
  - RENAL FAILURE [None]
  - SWELLING [None]
